FAERS Safety Report 5662213-0 (Version None)
Quarter: 2008Q1

REPORT INFORMATION
  Report Type: 
  Country: None (occurrence: None)
  Receive Date: 20080312
  Receipt Date: 20080229
  Transmission Date: 20080703
  Serious: Yes (Hospitalization, Other)
  Sender: FDA-Public Use
  Company Number: FR-GILEAD-2008-0015535

PATIENT
  Sex: Female

DRUGS (4)
  1. TRUVADA [Suspect]
     Indication: HIV INFECTION
     Route: 048
     Dates: start: 20070319
  2. KALETRA [Suspect]
     Indication: HIV INFECTION
     Route: 048
     Dates: start: 20070319
  3. KEPPRA [Suspect]
     Indication: EPILEPSY
     Route: 048
     Dates: start: 20070205, end: 20070604
  4. RISPERDAL [Suspect]
     Route: 048
     Dates: end: 20070528

REACTIONS (4)
  - ENCEPHALOPATHY [None]
  - MEMORY IMPAIRMENT [None]
  - MOOD ALTERED [None]
  - SPEECH DISORDER [None]
